FAERS Safety Report 18343038 (Version 2)
Quarter: 2021Q3

REPORT INFORMATION
  Report Type: Spontaneous
  Country: US (occurrence: US)
  Receive Date: 20201005
  Receipt Date: 20210930
  Transmission Date: 20211014
  Serious: No
  Sender: FDA-Public Use
  Company Number: US-AUROBINDO-AUR-APL-2020-013386

PATIENT
  Age: 59 Year
  Sex: Female
  Weight: 50 kg

DRUGS (6)
  1. SUMATRIPTAN TABLETS 100MG [Suspect]
     Active Substance: SUMATRIPTAN
     Indication: MIGRAINE
     Dosage: 1 DOSAGE FORM, AS DIRECTED
     Route: 048
     Dates: start: 2010
  2. SUMATRIPTAN TABLETS 100MG [Suspect]
     Active Substance: SUMATRIPTAN
     Dosage: 1 DOSAGE FORM, AS DIRECTED
     Route: 048
     Dates: start: 2010
  3. SUMATRIPTAN TABLETS 100MG [Suspect]
     Active Substance: SUMATRIPTAN
     Dosage: 1 DOSAGE FORM, AS DIRECTED
     Route: 048
     Dates: start: 2010
  4. SUMATRIPTAN TABLETS 100MG [Suspect]
     Active Substance: SUMATRIPTAN
     Dosage: 1 DOSAGE FORM, AS DIRECTED
     Route: 048
     Dates: start: 2010
  5. SUMATRIPTAN TABLETS 100MG [Suspect]
     Active Substance: SUMATRIPTAN
     Dosage: 1 DOSAGE FORM, AS DIRECTED
     Route: 048
     Dates: start: 2010
  6. SUMATRIPTAN TABLETS 100MG [Suspect]
     Active Substance: SUMATRIPTAN
     Dosage: 1 DOSAGE FORM, AS DIRECTED
     Route: 048
     Dates: start: 2010

REACTIONS (4)
  - Extra dose administered [Unknown]
  - Product substitution issue [Unknown]
  - Drug ineffective [Unknown]
  - Headache [Not Recovered/Not Resolved]
